FAERS Safety Report 16180943 (Version 1)
Quarter: 2019Q2

REPORT INFORMATION
  Report Type: Report from Study
  Country: BR (occurrence: BR)
  Receive Date: 20190410
  Receipt Date: 20190410
  Transmission Date: 20190711
  Serious: Yes (Other)
  Sender: FDA-Public Use
  Company Number: BR-EMD SERONO-E2B_90036857

PATIENT
  Sex: Female

DRUGS (6)
  1. VITAMINS WITH MINERALS [Concomitant]
     Active Substance: MINERALS\VITAMINS
     Indication: PRODUCT USED FOR UNKNOWN INDICATION
  2. REBIF [Suspect]
     Active Substance: INTERFERON BETA-1A
     Indication: MULTIPLE SCLEROSIS
     Dosage: 50 % TITRATION DOSE
     Route: 058
     Dates: start: 20180307
  3. PREGABALIN. [Concomitant]
     Active Substance: PREGABALIN
     Indication: BACK PAIN
  4. DULOXETINE. [Concomitant]
     Active Substance: DULOXETINE
     Indication: PRODUCT USED FOR UNKNOWN INDICATION
  5. REBIF [Suspect]
     Active Substance: INTERFERON BETA-1A
     Route: 058
     Dates: start: 201803, end: 20190121
  6. DIPIRONA [Concomitant]
     Active Substance: METAMIZOLE
     Indication: BACK PAIN

REACTIONS (13)
  - Limb injury [Unknown]
  - Spinal pain [Not Recovered/Not Resolved]
  - Yellow skin [Recovering/Resolving]
  - Headache [Not Recovered/Not Resolved]
  - Pain [Unknown]
  - Hepatic steatosis [Recovering/Resolving]
  - Hepatic neoplasm [Recovering/Resolving]
  - Hepatic necrosis [Recovering/Resolving]
  - Nasopharyngitis [Not Recovered/Not Resolved]
  - Ill-defined disorder [Unknown]
  - Aspartate aminotransferase increased [Recovering/Resolving]
  - Alanine aminotransferase increased [Recovering/Resolving]
  - Pyrexia [Not Recovered/Not Resolved]

NARRATIVE: CASE EVENT DATE: 2018
